FAERS Safety Report 13921619 (Version 1)
Quarter: 2017Q3

REPORT INFORMATION
  Report Type: Spontaneous
  Country: US (occurrence: None)
  Receive Date: 20170830
  Receipt Date: 20170830
  Transmission Date: 20171127
  Serious: No
  Sender: FDA-Public Use
  Company Number: None

PATIENT
  Age: 56 Year
  Sex: Male
  Weight: 63.05 kg

DRUGS (10)
  1. MORPHINE SULF ER 15MG TAB-SUB FOR MS CONTIN [Suspect]
     Active Substance: MORPHINE SULFATE
     Indication: SPINAL FUSION SURGERY
     Route: 048
     Dates: start: 20170204
  2. MORPHINE SULF ER 15MG TAB-SUB FOR MS CONTIN [Suspect]
     Active Substance: MORPHINE SULFATE
     Indication: SPINAL OPERATION
     Route: 048
     Dates: start: 20170204
  3. LEXAPRO [Concomitant]
     Active Substance: ESCITALOPRAM OXALATE
  4. MORPHINE [Concomitant]
     Active Substance: MORPHINE
  5. ASPIRIN. [Concomitant]
     Active Substance: ASPIRIN
  6. NORVASC [Concomitant]
     Active Substance: AMLODIPINE BESYLATE
  7. NORCO [Concomitant]
     Active Substance: ACETAMINOPHEN\HYDROCODONE BITARTRATE
  8. LISINOPRIL. [Concomitant]
     Active Substance: LISINOPRIL
  9. MORPHINE SULF ER 15MG TAB-SUB FOR MS CONTIN [Suspect]
     Active Substance: MORPHINE SULFATE
     Indication: SURGERY
     Route: 048
     Dates: start: 20170204
  10. TRAZODONE [Concomitant]
     Active Substance: TRAZODONE HYDROCHLORIDE

REACTIONS (3)
  - Drug ineffective [None]
  - Malaise [None]
  - Feeling abnormal [None]

NARRATIVE: CASE EVENT DATE: 20170802
